FAERS Safety Report 22591961 (Version 1)
Quarter: 2023Q2

REPORT INFORMATION
  Report Type: Spontaneous
  Country: US (occurrence: None)
  Receive Date: 20230612
  Receipt Date: 20230612
  Transmission Date: 20230722
  Serious: No
  Sender: FDA-Public Use
  Company Number: US-ROCHE-3166474

PATIENT
  Sex: Female
  Weight: 57.658 kg

DRUGS (4)
  1. TECENTRIQ [Suspect]
     Active Substance: ATEZOLIZUMAB
     Indication: Bladder cancer
     Route: 041
     Dates: start: 201704
  2. LISINOPRIL [Concomitant]
     Active Substance: LISINOPRIL
     Dosage: ONCE A DAY
  3. XARELTO [Concomitant]
     Active Substance: RIVAROXABAN
     Dosage: ONCE A DAY
  4. LIPITOR [Concomitant]
     Active Substance: ATORVASTATIN CALCIUM

REACTIONS (2)
  - Fatigue [Unknown]
  - Therapeutic response unexpected [Unknown]
